FAERS Safety Report 4918250-4 (Version None)
Quarter: 2006Q1

REPORT INFORMATION
  Report Type: 
  Country: None (occurrence: None)
  Receive Date: 20060214
  Receipt Date: 20060202
  Transmission Date: 20060701
  Serious: Yes (Hospitalization, Other)
  Sender: FDA-Public Use
  Company Number: HQWYE649303FEB06

PATIENT
  Age: 3 Month
  Sex: Male

DRUGS (2)
  1. ADVIL ENFANTS ET NOURRISSONS (IBUPROFEN, SUSPENSION) [Suspect]
     Indication: PYREXIA
     Route: 048
     Dates: start: 20060102, end: 20060104
  2. ACETAMINOPHEN [Suspect]
     Dates: start: 20060102

REACTIONS (5)
  - CYTOLYTIC HEPATITIS [None]
  - DERMATITIS INFECTED [None]
  - EPIDERMOLYSIS BULLOSA [None]
  - RENAL FAILURE [None]
  - VIRAL INFECTION [None]
